FAERS Safety Report 6741238-8 (Version None)
Quarter: 2010Q2

REPORT INFORMATION
  Report Type: 
  Country: None (occurrence: None)
  Receive Date: 20100526
  Receipt Date: 20100517
  Transmission Date: 20101027
  Serious: Yes (Hospitalization)
  Sender: FDA-Public Use
  Company Number: FR-JNJFOC-20100506970

PATIENT
  Sex: Female

DRUGS (13)
  1. DURAGESIC-100 [Suspect]
     Indication: DRUG USE FOR UNKNOWN INDICATION
     Route: 062
  2. NOZINAN [Interacting]
     Indication: DRUG USE FOR UNKNOWN INDICATION
     Dosage: DOSAGE: 3 DROOPS AT MORNING, 3 AT MIDDAY AND 8 AT EVENING
     Route: 048
     Dates: end: 20100110
  3. ACTISKENAN [Interacting]
     Indication: DRUG USE FOR UNKNOWN INDICATION
     Route: 048
     Dates: end: 20100110
  4. PROFENID [Concomitant]
     Route: 065
  5. KARDEGIC [Concomitant]
     Route: 065
  6. MOPRAL [Concomitant]
     Route: 065
  7. EFFERALGAN [Concomitant]
     Route: 065
  8. ZANIDIP [Concomitant]
     Route: 065
  9. ACTONEL [Concomitant]
     Route: 065
  10. PANOS [Concomitant]
     Route: 065
  11. NISIS [Concomitant]
     Route: 065
  12. FORLAX [Concomitant]
     Route: 065
  13. CALCIUM CARBONATE [Concomitant]
     Route: 065

REACTIONS (7)
  - ALTERED STATE OF CONSCIOUSNESS [None]
  - DRUG INTERACTION [None]
  - HYPERKALAEMIA [None]
  - MALAISE [None]
  - MALNUTRITION [None]
  - OVERDOSE [None]
  - VOLUME BLOOD DECREASED [None]
